FAERS Safety Report 6417547-9 (Version None)
Quarter: 2009Q4

REPORT INFORMATION
  Report Type: 
  Country: None (occurrence: None)
  Receive Date: 20091023
  Receipt Date: 20091013
  Transmission Date: 20100525
  Serious: Yes (Disabling, Other)
  Sender: FDA-Public Use
  Company Number: ADR36362009

PATIENT
  Age: 50 Year
  Sex: Male

DRUGS (6)
  1. SIMVASTATIN [Suspect]
     Dosage: 20 MG, ORAL
     Route: 048
     Dates: start: 20070520, end: 20070628
  2. ATORVASTATIN [Concomitant]
  3. AMLODIPINE [Concomitant]
  4. BENDROFLMETHIAZIDE [Concomitant]
  5. MOXONIDINE [Concomitant]
  6. PREINDOPRIL [Concomitant]

REACTIONS (1)
  - TENDONITIS [None]
